FAERS Safety Report 4783478-3 (Version None)
Quarter: 2005Q3

REPORT INFORMATION
  Report Type: 
  Country: None (occurrence: None)
  Receive Date: 20050928
  Receipt Date: 20050928
  Transmission Date: 20060218
  Serious: Yes (Life-Threatening, Hospitalization)
  Sender: FDA-Public Use
  Company Number: None

PATIENT
  Age: 62 Year
  Sex: Male
  Weight: 82.6 kg

DRUGS (2)
  1. ATENOLOL [Suspect]
     Dosage: 100MG QDBY MOUTH
     Route: 048
     Dates: start: 20050526, end: 20050601
  2. HYDROCHLOROTHIAZIDE [Concomitant]

REACTIONS (4)
  - ANGIONEUROTIC OEDEMA [None]
  - BRADYCARDIA [None]
  - DIZZINESS [None]
  - SWELLING [None]
